FAERS Safety Report 6735709-8 (Version None)
Quarter: 2010Q2

REPORT INFORMATION
  Report Type: 
  Country: None (occurrence: None)
  Receive Date: 20100521
  Receipt Date: 20100511
  Transmission Date: 20101027
  Serious: Yes (Hospitalization)
  Sender: FDA-Public Use
  Company Number: A0764688A

PATIENT
  Age: 50 Year
  Sex: Male
  Weight: 76.4 kg

DRUGS (1)
  1. AVANDIA [Suspect]
     Indication: TYPE 2 DIABETES MELLITUS
     Dosage: 8MG PER DAY
     Route: 048
     Dates: start: 19990101

REACTIONS (3)
  - CARDIAC FAILURE CONGESTIVE [None]
  - LIVER INJURY [None]
  - RENAL INJURY [None]
